FAERS Safety Report 18866284 (Version 1)
Quarter: 2021Q1

REPORT INFORMATION
  Report Type: Spontaneous
  Country: US (occurrence: US)
  Receive Date: 20210209
  Receipt Date: 20210209
  Transmission Date: 20210420
  Serious: Yes (Other)
  Sender: FDA-Public Use
  Company Number: US-GYP-000270

PATIENT
  Age: 56 Year

DRUGS (4)
  1. PREDNISONE. [Suspect]
     Active Substance: PREDNISONE
     Indication: PROPHYLAXIS AGAINST TRANSPLANT REJECTION
     Route: 065
  2. PREDNISONE. [Suspect]
     Active Substance: PREDNISONE
     Indication: PROPHYLAXIS AGAINST TRANSPLANT REJECTION
     Route: 065
  3. TACROLIMUS. [Suspect]
     Active Substance: TACROLIMUS
     Indication: PROPHYLAXIS AGAINST TRANSPLANT REJECTION
     Route: 065
  4. MYCOPHENOLATE MOFETIL. [Suspect]
     Active Substance: MYCOPHENOLATE MOFETIL
     Indication: PROPHYLAXIS AGAINST TRANSPLANT REJECTION
     Route: 065

REACTIONS (15)
  - Leukocytosis [Unknown]
  - Pleural effusion [Unknown]
  - Delayed graft function [Unknown]
  - Kidney infection [Unknown]
  - Polyomavirus viraemia [Unknown]
  - Pneumonia [Unknown]
  - COVID-19 [Recovered/Resolved]
  - Hyperkalaemia [Unknown]
  - Oliguria [Unknown]
  - Pyrexia [Unknown]
  - Bacteraemia [Unknown]
  - Malnutrition [Unknown]
  - Renal tubular necrosis [Unknown]
  - Fluid overload [Unknown]
  - Product use in unapproved indication [Unknown]
